FAERS Safety Report 24249406 (Version 1)
Quarter: 2024Q3

REPORT INFORMATION
  Report Type: Spontaneous
  Country: US (occurrence: US)
  Receive Date: 20240826
  Receipt Date: 20240826
  Transmission Date: 20241016
  Serious: Yes (Hospitalization, Other)
  Sender: OTSUKA
  Company Number: US-OTSUKA-2024_022925

PATIENT
  Age: 73 Year
  Sex: Male

DRUGS (2)
  1. ARIPIPRAZOLE [Interacting]
     Active Substance: ARIPIPRAZOLE
     Indication: Major depression
     Dosage: 10 MG
     Route: 065
  2. BUPROPION [Interacting]
     Active Substance: BUPROPION
     Indication: Major depression
     Dosage: UNK
     Route: 065

REACTIONS (4)
  - Respiratory dyskinesia [Recovered/Resolved]
  - Tardive dyskinesia [Unknown]
  - Parkinsonism [Unknown]
  - Potentiating drug interaction [Unknown]
